FAERS Safety Report 15225608 (Version 1)
Quarter: 2018Q3

REPORT INFORMATION
  Report Type: Spontaneous
  Country: JP (occurrence: JP)
  Receive Date: 20180801
  Receipt Date: 20180801
  Transmission Date: 20181010
  Serious: Yes (Other)
  Sender: FDA-Public Use
  Company Number: JP-009507513-1807JPN002915J

PATIENT
  Age: 64 Year
  Sex: Male

DRUGS (1)
  1. TEMODAL [Suspect]
     Active Substance: TEMOZOLOMIDE
     Dosage: UNK
     Route: 048
     Dates: start: 20180629, end: 20180712

REACTIONS (2)
  - Lower gastrointestinal perforation [Unknown]
  - Intestinal perforation [Unknown]

NARRATIVE: CASE EVENT DATE: 2018
